FAERS Safety Report 9689346 (Version 1)
Quarter: 2013Q4

REPORT INFORMATION
  Report Type: Report from Study
  Country: CN (occurrence: CN)
  Receive Date: 20131114
  Receipt Date: 20131114
  Transmission Date: 20140711
  Serious: Yes (Other)
  Sender: FDA-Public Use
  Company Number: CN-ELI_LILLY_AND_COMPANY-CN201311003080

PATIENT
  Age: 41 Year
  Sex: Male

DRUGS (2)
  1. TADALAFIL [Suspect]
     Indication: ERECTILE DYSFUNCTION
     Dosage: 10 MG, SINGLE
     Route: 048
     Dates: start: 20131102, end: 20131102
  2. TADALAFIL [Suspect]
     Dosage: 1 DF, UNKNOWN
     Route: 065

REACTIONS (4)
  - Laryngeal oedema [Recovered/Resolved]
  - Dysphagia [Recovered/Resolved]
  - Drug ineffective [Unknown]
  - Suspected counterfeit product [Unknown]
